FAERS Safety Report 21553691 (Version 15)
Quarter: 2025Q2

REPORT INFORMATION
  Report Type: Report from Study
  Country: US (occurrence: US)
  Receive Date: 20221104
  Receipt Date: 20250411
  Transmission Date: 20250717
  Serious: Yes (Hospitalization, Other)
  Sender: TAKEDA
  Company Number: US-TAKEDA-2021TUS020268

PATIENT
  Age: 35 Year
  Sex: Female
  Weight: 126 kg

DRUGS (28)
  1. HUMAN IMMUNOGLOBULIN G [Suspect]
     Active Substance: HUMAN IMMUNOGLOBULIN G
     Indication: Immunodeficiency common variable
     Dosage: 8 GRAM, Q2WEEKS
     Dates: start: 201907
  2. HUMAN IMMUNOGLOBULIN G [Suspect]
     Active Substance: HUMAN IMMUNOGLOBULIN G
     Indication: Selective IgM immunodeficiency
     Dosage: 8 GRAM, 1/WEEK
     Dates: start: 20210305
  3. HUMAN IMMUNOGLOBULIN G [Suspect]
     Active Substance: HUMAN IMMUNOGLOBULIN G
     Dosage: 8 GRAM, 1/WEEK
     Dates: start: 20210322
  4. HUMAN IMMUNOGLOBULIN G [Suspect]
     Active Substance: HUMAN IMMUNOGLOBULIN G
     Dosage: 8 GRAM, 1/WEEK
  5. DIPHENHYDRAMINE [Concomitant]
     Active Substance: DIPHENHYDRAMINE
  6. METOPROLOL SUCCINATE [Concomitant]
     Active Substance: METOPROLOL SUCCINATE
  7. POTASSIUM CHLORIDE [Concomitant]
     Active Substance: POTASSIUM CHLORIDE
  8. CYANOCOBALAMIN [Concomitant]
     Active Substance: CYANOCOBALAMIN
  9. EPINEPHRINE [Concomitant]
     Active Substance: EPINEPHRINE
  10. DULOXETINE HYDROCHLORIDE [Concomitant]
     Active Substance: DULOXETINE HYDROCHLORIDE
  11. HYDROXYCHLOROQUINE SULFATE [Concomitant]
     Active Substance: HYDROXYCHLOROQUINE SULFATE
  12. SULFAMETHOXAZOLE [Concomitant]
     Active Substance: SULFAMETHOXAZOLE
  13. AUGMENTIN [Concomitant]
     Active Substance: AMOXICILLIN\CLAVULANATE POTASSIUM
  14. PROCRIT [Concomitant]
     Active Substance: ERYTHROPOIETIN
  15. ACETAMINOPHEN [Concomitant]
     Active Substance: ACETAMINOPHEN
  16. FAMOTIDINE [Concomitant]
     Active Substance: FAMOTIDINE
  17. FOLIC ACID [Concomitant]
     Active Substance: FOLIC ACID
  18. Lmx [Concomitant]
  19. AMLODIPINE BESYLATE [Concomitant]
     Active Substance: AMLODIPINE BESYLATE
  20. CALCITRIOL [Concomitant]
     Active Substance: CALCITRIOL
  21. FERROUS SULFATE [Concomitant]
     Active Substance: FERROUS SULFATE
  22. LEVETIRACETAM [Concomitant]
     Active Substance: LEVETIRACETAM
  23. TORSEMIDE [Concomitant]
     Active Substance: TORSEMIDE
  24. PREDNISONE [Concomitant]
     Active Substance: PREDNISONE
  25. LOVENOX [Concomitant]
     Active Substance: ENOXAPARIN SODIUM
  26. VIMPAT [Concomitant]
     Active Substance: LACOSAMIDE
  27. MYCOPHENOLATE MOFETIL [Concomitant]
     Active Substance: MYCOPHENOLATE MOFETIL
  28. DIPHENHYDRAMINE HYDROCHLORIDE [Concomitant]
     Active Substance: DIPHENHYDRAMINE HYDROCHLORIDE

REACTIONS (23)
  - Limb discomfort [Unknown]
  - Systemic lupus erythematosus [Unknown]
  - Multiple sclerosis [Unknown]
  - Internal haemorrhage [Unknown]
  - Cardiac disorder [Unknown]
  - Cystitis [Recovering/Resolving]
  - Heart rate increased [Unknown]
  - Seizure [Unknown]
  - Blood pressure increased [Unknown]
  - Dyspnoea [Unknown]
  - Accident [Unknown]
  - Energy increased [Recovered/Resolved]
  - Asthenopia [Recovered/Resolved]
  - Eating disorder [Unknown]
  - Product distribution issue [Unknown]
  - Weight decreased [Unknown]
  - Weight fluctuation [Unknown]
  - Product availability issue [Recovered/Resolved]
  - Product dose omission issue [Recovered/Resolved]
  - Product prescribing issue [Recovered/Resolved]
  - Decreased appetite [Unknown]
  - Pain in extremity [Unknown]
  - Vomiting [Unknown]

NARRATIVE: CASE EVENT DATE: 20210322
